FAERS Safety Report 15588276 (Version 2)
Quarter: 2018Q4

REPORT INFORMATION
  Report Type: Report from Study
  Country: US (occurrence: US)
  Receive Date: 20181105
  Receipt Date: 20181105
  Transmission Date: 20190205
  Serious: Yes (Other)
  Sender: FDA-Public Use
  Company Number: US-JAZZ-2018-US-013679

PATIENT
  Age: 37 Year
  Sex: Female

DRUGS (28)
  1. ZITHROMAX [Concomitant]
     Active Substance: AZITHROMYCIN DIHYDRATE
  2. MELOXICAM. [Concomitant]
     Active Substance: MELOXICAM
  3. TRAMADOL HCL [Concomitant]
     Active Substance: TRAMADOL HYDROCHLORIDE
  4. VITAMIN D3 [Concomitant]
     Active Substance: CHOLECALCIFEROL
  5. SUMATRIPTAN SUCCINATE. [Concomitant]
     Active Substance: SUMATRIPTAN SUCCINATE
  6. XYREM [Suspect]
     Active Substance: SODIUM OXYBATE
     Indication: NARCOLEPSY
     Dosage: 2.25 G, BID
     Route: 048
     Dates: start: 20180901
  7. PANTOPRAZOLE SODIUM. [Concomitant]
     Active Substance: PANTOPRAZOLE SODIUM
  8. BOTOX COSMETIC [Concomitant]
     Active Substance: ONABOTULINUMTOXINA
  9. ONDANSETRON [Concomitant]
     Active Substance: ONDANSETRON
  10. BUTALBITAL, ACETAMINOPHEN, AND CAFFEINE [Concomitant]
     Active Substance: ACETAMINOPHEN\BUTALBITAL\CAFFEINE
  11. CYCLOBENZAPRINE. [Concomitant]
     Active Substance: CYCLOBENZAPRINE
  12. XANAX [Concomitant]
     Active Substance: ALPRAZOLAM
  13. MAXALT-MLT [Concomitant]
     Active Substance: RIZATRIPTAN BENZOATE
  14. PHOSPHA 250 NEUTRAL [Concomitant]
     Active Substance: POTASSIUM PHOSPHATE, MONOBASIC\SODIUM PHOSPHATE, DIBASIC, ANHYDROUS\SODIUM PHOSPHATE, MONOBASIC, MONOHYDRATE
  15. EPIPEN [Concomitant]
     Active Substance: EPINEPHRINE
  16. PIROXICAM. [Concomitant]
     Active Substance: PIROXICAM
  17. TIZANIDINE HCL [Concomitant]
     Active Substance: TIZANIDINE HYDROCHLORIDE
  18. LINZESS [Concomitant]
     Active Substance: LINACLOTIDE
  19. BENTYL [Concomitant]
     Active Substance: DICYCLOMINE HYDROCHLORIDE
  20. XYREM [Suspect]
     Active Substance: SODIUM OXYBATE
     Indication: CATAPLEXY
  21. NUVIGIL [Concomitant]
     Active Substance: ARMODAFINIL
  22. ESTRADIOL. [Concomitant]
     Active Substance: ESTRADIOL
  23. PROAIR HFA [Concomitant]
     Active Substance: ALBUTEROL SULFATE
  24. POTASSIUM [Concomitant]
     Active Substance: POTASSIUM
  25. MONTELUKAST SODIUM. [Concomitant]
     Active Substance: MONTELUKAST SODIUM
  26. FOLIC ACID. [Concomitant]
     Active Substance: FOLIC ACID
  27. CYANOCOBALAMIN. [Concomitant]
     Active Substance: CYANOCOBALAMIN
  28. VENOFER [Concomitant]
     Active Substance: IRON SUCROSE

REACTIONS (7)
  - Cataplexy [Unknown]
  - Headache [Recovering/Resolving]
  - Wrong technique in product usage process [Unknown]
  - Pre-existing condition improved [Unknown]
  - Iron deficiency anaemia [Unknown]
  - Therapeutic response unexpected [Unknown]
  - Weight decreased [Unknown]

NARRATIVE: CASE EVENT DATE: 201809
